FAERS Safety Report 7869644-9 (Version None)
Quarter: 2011Q4

REPORT INFORMATION
  Report Type: 
  Country: None (occurrence: None)
  Receive Date: 20111028
  Receipt Date: 20111028
  Transmission Date: 20120403
  Serious: Yes (Other)
  Sender: FDA-Public Use
  Company Number: None

PATIENT
  Sex: Female

DRUGS (2)
  1. CYCLOSPORINE [Suspect]
     Indication: TRANSPLANT
     Dosage: 75MG PO BID
     Route: 048
     Dates: start: 20100501, end: 20111001
  2. SANDIMMUNE [Suspect]
     Indication: TRANSPLANT
     Dosage: 75MG PO BID
     Route: 048
     Dates: start: 20081208, end: 20100401

REACTIONS (2)
  - PRODUCT SUBSTITUTION ISSUE [None]
  - SKIN CANCER [None]
